FAERS Safety Report 18589899 (Version 1)
Quarter: 2020Q4

REPORT INFORMATION
  Report Type: Spontaneous
  Country: US (occurrence: US)
  Receive Date: 20201207
  Receipt Date: 20201207
  Transmission Date: 20210114
  Serious: No
  Sender: FDA-Public Use
  Company Number: None

PATIENT
  Age: 65 Year
  Sex: Male
  Weight: 108 kg

DRUGS (1)
  1. ZEP HAND SANITIZER [Suspect]
     Active Substance: ALCOHOL

REACTIONS (3)
  - Injury corneal [None]
  - Accidental exposure to product [None]
  - Product container seal issue [None]

NARRATIVE: CASE EVENT DATE: 20201129
